FAERS Safety Report 5006286-7 (Version None)
Quarter: 2006Q2

REPORT INFORMATION
  Report Type: 
  Country: None (occurrence: None)
  Receive Date: 20060519
  Receipt Date: 20060316
  Transmission Date: 20061013
  Serious: Yes (Hospitalization)
  Sender: FDA-Public Use
  Company Number: PHNU2006DE01365

PATIENT
  Sex: Female

DRUGS (1)
  1. TEGRETOL [Suspect]
     Indication: TRIGEMINAL NEURALGIA
     Dates: end: 20060201

REACTIONS (3)
  - ATRIOVENTRICULAR BLOCK COMPLETE [None]
  - CARDIAC PACEMAKER INSERTION [None]
  - SICK SINUS SYNDROME [None]
